FAERS Safety Report 13784663 (Version 1)
Quarter: 2017Q3

REPORT INFORMATION
  Report Type: Spontaneous
  Country: US (occurrence: US)
  Receive Date: 20170724
  Receipt Date: 20170724
  Transmission Date: 20171127
  Serious: No
  Sender: FDA-Public Use
  Company Number: US-IMPAX LABORATORIES, INC-2017-IPXL-01404

PATIENT
  Age: 78 Year
  Sex: Male

DRUGS (1)
  1. RYTARY [Suspect]
     Active Substance: CARBIDOPA\LEVODOPA
     Indication: VASCULAR PARKINSONISM
     Dosage: 23.75/95 MG, ONE CAPSULE, 3/DAY
     Route: 048

REACTIONS (1)
  - Product use in unapproved indication [Unknown]
